FAERS Safety Report 10025717 (Version 1)
Quarter: 2014Q1

REPORT INFORMATION
  Report Type: Spontaneous
  Country: FR (occurrence: None)
  Receive Date: 20140314
  Receipt Date: 20140314
  Transmission Date: 20141002
  Serious: Yes (Hospitalization)
  Sender: FDA-Public Use
  Company Number: SYM-2014-18412

PATIENT
  Age: 38 Year
  Sex: Female

DRUGS (15)
  1. FLAGYL (METRONIDAZOLE) (400 MILLIGRAM, TABLETS) (METRONIDAZOLE) [Suspect]
     Indication: PRODUCT USED FOR UNKNOWN INDICATION
     Route: 042
     Dates: start: 20140118, end: 20140127
  2. TOPALGIC (TRAMADOL HYDROCHLORIDE) (SOLUTION FOR INJECTION) [Suspect]
     Indication: PRODUCT USED FOR UNKNOWN INDICATION
     Route: 042
     Dates: start: 20140118, end: 20140129
  3. PARACETAMOL (PARACETAMOL) [Suspect]
     Indication: PRODUCT USED FOR UNKNOWN INDICATION
     Route: 042
     Dates: start: 20140128, end: 20140128
  4. CEFTRIAXONE (CEFTRIAXONE) [Suspect]
     Indication: PRODUCT USED FOR UNKNOWN INDICATION
     Dates: start: 20140118
  5. AMINO ACIDS/GLUCOSE/LIPIDS (AMINO ACIDS NOPS W/GLUCOSE/LIPIDS NOS) (GLUCOSE, AMINO ACIDS NOS, LIPIDS NOS) [Suspect]
     Indication: PRODUCT USED FOR UNKNOWN INDICATION
     Dates: start: 20140128, end: 20140210
  6. SODIUM CHLORIDE (SODIUM CHLORIDE) [Suspect]
     Indication: PRODUCT USED FOR UNKNOWN INDICATION
     Dates: start: 20140118, end: 20140127
  7. SPASFON (SPASFON (100765801)(SOLUTION FOR INJECTION) (PHLOROGLUCINOL, TRIMETHYLPHLOROGLUCINOL) [Suspect]
  8. LOVENX (ENOXAPARIN SODIUM) [Concomitant]
  9. SOLUTIONS AFFECTING THE ELECTROLYTE BALANCE (SOLUTIONS AFFECTING THE ELECTROLYTE BALANCE) [Concomitant]
  10. INEXIUM (ESOMEPRAZOLE MAGNESIUM) (ESOMEPRAZOLE MAGNESIUM) [Concomitant]
  11. TAZOCILLINE (PIP/TAZO) (PIPERACILLIN SODIUM, TAZOBACTAM SODIUM) [Concomitant]
  12. BENERVA (THIAMINE HYDROCHLORIDE) [Concomitant]
  13. MULTIVITAMINS (MULTIVITAMINS) (ERGOCALCIFEROL, ASCORBIC ACID, FOLIC ACID, THIAMINE HYDROCHLORIDE, RETINOL, RIBOFLAVIN, NICOTINAMIDE, PANTHENOL) [Concomitant]
  14. NICOTINAMIDE (NICOTINAMIDE) [Concomitant]
  15. GENTAMICIN (GENTAMICIN) [Concomitant]

REACTIONS (4)
  - Infusion site inflammation [None]
  - Douglas^ pouch mass [None]
  - Abscess [None]
  - Extravasation [None]
